FAERS Safety Report 8217954-8 (Version None)
Quarter: 2012Q1

REPORT INFORMATION
  Report Type: 
  Country: None (occurrence: None)
  Receive Date: 20120305
  Receipt Date: 20111109
  Transmission Date: 20120608
  Serious: No
  Sender: FDA-Public Use
  Company Number: 1000025416

PATIENT
  Age: 67 Year
  Sex: Male

DRUGS (4)
  1. SPIRIVA [Concomitant]
  2. SYMBICORT [Suspect]
  3. DALIRESP [Suspect]
     Indication: CHRONIC OBSTRUCTIVE PULMONARY DISEASE
     Dosage: 500 MCG (500 MCG, 1 IN 1 D), ORAL
     Route: 048
     Dates: start: 20110922, end: 20111001
  4. PREDNISONE TAB [Concomitant]

REACTIONS (5)
  - DIARRHOEA [None]
  - DECREASED APPETITE [None]
  - ANXIETY [None]
  - RESTLESSNESS [None]
  - WEIGHT DECREASED [None]
